FAERS Safety Report 8321315-0 (Version None)
Quarter: 2012Q2

REPORT INFORMATION
  Report Type: 
  Country: None (occurrence: None)
  Receive Date: 20120430
  Receipt Date: 20120426
  Transmission Date: 20120825
  Serious: Yes (Hospitalization)
  Sender: FDA-Public Use
  Company Number: US-JNJFOC-20120109595

PATIENT
  Sex: Female

DRUGS (26)
  1. NEURONTIN [Concomitant]
     Indication: PRODUCT USED FOR UNKNOWN INDICATION
     Route: 065
  2. PACERONE [Concomitant]
     Indication: PRODUCT USED FOR UNKNOWN INDICATION
     Route: 048
  3. DOXORUBICIN HYDROCHLORIDE [Suspect]
     Dosage: DURATION OF TREATMENT WAS 2.5 MONTHS
     Route: 042
     Dates: start: 20110831, end: 20111115
  4. AMLODIPINE [Concomitant]
     Indication: PRODUCT USED FOR UNKNOWN INDICATION
     Route: 048
  5. CLONIDINE [Concomitant]
     Indication: PRODUCT USED FOR UNKNOWN INDICATION
     Route: 065
  6. FENOFIBRATE [Concomitant]
     Indication: PRODUCT USED FOR UNKNOWN INDICATION
     Route: 048
  7. HYDROCODONE [Concomitant]
     Indication: PAIN
     Route: 048
  8. SIMVASTATIN [Concomitant]
     Indication: PRODUCT USED FOR UNKNOWN INDICATION
     Route: 048
  9. VITAMIN B-12 [Concomitant]
     Indication: PRODUCT USED FOR UNKNOWN INDICATION
     Route: 065
  10. NOVOLOG [Concomitant]
     Indication: PRODUCT USED FOR UNKNOWN INDICATION
     Route: 065
  11. VELCADE [Suspect]
     Route: 042
     Dates: start: 20111227
  12. VELCADE [Suspect]
     Route: 042
     Dates: start: 20120103
  13. ASPIRIN [Concomitant]
     Indication: PRODUCT USED FOR UNKNOWN INDICATION
     Route: 065
  14. FOLIC ACID [Concomitant]
     Indication: PRODUCT USED FOR UNKNOWN INDICATION
     Route: 048
  15. METFORMIN HCL [Concomitant]
     Indication: PRODUCT USED FOR UNKNOWN INDICATION
     Route: 065
  16. BETASERON [Concomitant]
     Indication: PRODUCT USED FOR UNKNOWN INDICATION
     Route: 058
  17. ZOLOFT [Concomitant]
     Indication: PRODUCT USED FOR UNKNOWN INDICATION
     Route: 065
  18. PRILOSEC [Concomitant]
     Route: 065
  19. ALL OTHER THERAPEUTIC PRODUCTS [Concomitant]
     Indication: ORAL PAIN
     Route: 065
  20. DOXORUBICIN HYDROCHLORIDE [Suspect]
     Indication: MULTIPLE MYELOMA
     Dosage: WEEK 5, 250ML IVPB
     Route: 042
     Dates: start: 20111227
  21. VELCADE [Suspect]
     Indication: MULTIPLE MYELOMA
     Route: 042
     Dates: start: 20111221
  22. VELCADE [Suspect]
     Dosage: DURATION OF TREATMENT WAS 1 YEAR
     Route: 042
     Dates: start: 20101210, end: 20111115
  23. ACYCLOVIR [Concomitant]
     Indication: PRODUCT USED FOR UNKNOWN INDICATION
     Route: 048
  24. TEMAZEPAM [Concomitant]
     Indication: PRODUCT USED FOR UNKNOWN INDICATION
     Route: 048
  25. VITAMIN D [Concomitant]
     Indication: PRODUCT USED FOR UNKNOWN INDICATION
     Route: 048
  26. ONDANSETRON HCL [Concomitant]
     Indication: NAUSEA
     Route: 065

REACTIONS (6)
  - NEPHROGENIC ANAEMIA [None]
  - PANCYTOPENIA [None]
  - OEDEMA [None]
  - HYPERTENSION [None]
  - PNEUMONIA [None]
  - ELECTROLYTE IMBALANCE [None]
